FAERS Safety Report 26068199 (Version 1)
Quarter: 2025Q4

REPORT INFORMATION
  Report Type: Spontaneous
  Country: US (occurrence: US)
  Receive Date: 20251120
  Receipt Date: 20251120
  Transmission Date: 20260119
  Serious: Yes (Other)
  Sender: SANOFI AVENTIS
  Company Number: US-SA-2025SA340883

PATIENT
  Age: 5 Year
  Sex: Female

DRUGS (1)
  1. DUPIXENT [Suspect]
     Active Substance: DUPILUMAB
     Indication: Asthma
     Dosage: 300 MG, Q4W
     Route: 058

REACTIONS (8)
  - Autism spectrum disorder [Unknown]
  - Pruritus [Unknown]
  - Rash erythematous [Unknown]
  - Mood swings [Unknown]
  - Condition aggravated [Unknown]
  - Aggression [Unknown]
  - Anger [Unknown]
  - Product use in unapproved indication [Unknown]
